FAERS Safety Report 6724351-0 (Version None)
Quarter: 2010Q2

REPORT INFORMATION
  Report Type: 
  Country: None (occurrence: None)
  Receive Date: 20100513
  Receipt Date: 20100503
  Transmission Date: 20101027
  Serious: Yes (Other)
  Sender: FDA-Public Use
  Company Number: US-BAYER-201017295NA

PATIENT
  Age: 69 Year
  Sex: Female

DRUGS (1)
  1. ULTRAVIST 300 [Suspect]
     Indication: COMPUTERISED TOMOGRAM ABDOMEN
     Dosage: ANTECUBITAL USING POWER INJECTOR @ INJECTION RATE 2.5 ML/SEC.
     Route: 042
     Dates: start: 20100322, end: 20100322

REACTIONS (6)
  - DYSPNOEA [None]
  - ERYTHEMA [None]
  - HYPOAESTHESIA FACIAL [None]
  - SWOLLEN TONGUE [None]
  - THROAT TIGHTNESS [None]
  - URTICARIA [None]
